FAERS Safety Report 6906815-X (Version None)
Quarter: 2010Q3

REPORT INFORMATION
  Report Type: 
  Country: None (occurrence: None)
  Receive Date: 20100708
  Receipt Date: 20090522
  Transmission Date: 20110219
  Serious: Yes (Other)
  Sender: FDA-Public Use
  Company Number: 2009169192

PATIENT
  Age: 55 Year
  Sex: Female
  Weight: 81.6 kg

DRUGS (6)
  1. CHANTIX [Suspect]
     Indication: SMOKING CESSATION THERAPY
     Dosage: 0.5 MG, 1X/DAY : 1 MG, 2X/DAY
     Dates: start: 20090121, end: 20090201
  2. CHANTIX [Suspect]
     Indication: SMOKING CESSATION THERAPY
     Dosage: 0.5 MG, 1X/DAY : 1 MG, 2X/DAY
     Dates: start: 20090201, end: 20090205
  3. LYRICA [Concomitant]
  4. CARDIZEM [Concomitant]
  5. WARFARIN SODIUM [Concomitant]
  6. INSULIN (INSULIN) [Concomitant]

REACTIONS (6)
  - ABNORMAL DREAMS [None]
  - ADVERSE EVENT [None]
  - DEPRESSION [None]
  - DRUG INEFFECTIVE [None]
  - FEELING ABNORMAL [None]
  - SUICIDE ATTEMPT [None]
